FAERS Safety Report 11330559 (Version 1)
Quarter: 2015Q3

REPORT INFORMATION
  Report Type: Spontaneous
  Country: US (occurrence: US)
  Receive Date: 20150803
  Receipt Date: 20150803
  Transmission Date: 20151125
  Serious: No
  Sender: FDA-Public Use
  Company Number: US-TAKEDA-2015TUS006508

PATIENT
  Sex: Female

DRUGS (1)
  1. COLCRYS [Suspect]
     Active Substance: COLCHICINE
     Indication: PROPHYLAXIS
     Dosage: UNK, BID
     Route: 048
     Dates: start: 201503, end: 201505

REACTIONS (1)
  - Laryngeal pain [Unknown]

NARRATIVE: CASE EVENT DATE: 2015
